FAERS Safety Report 23417344 (Version 1)
Quarter: 2024Q1

REPORT INFORMATION
  Report Type: Spontaneous
  Country: US (occurrence: None)
  Receive Date: 20240117
  Receipt Date: 20240117
  Transmission Date: 20240409
  Serious: Yes (Hospitalization)
  Sender: FDA-Public Use
  Company Number: None

PATIENT
  Age: 9 Year
  Sex: Male

DRUGS (1)
  1. SKYTROFA [Suspect]
     Active Substance: LONAPEGSOMATROPIN-TCGD
     Indication: Blood growth hormone abnormal
     Dosage: 6.3 MG EVERY WEEK SUBCUTANEOUS
     Route: 058
     Dates: start: 20231229

REACTIONS (2)
  - Vomiting [None]
  - Drug ineffective [None]

NARRATIVE: CASE EVENT DATE: 20231229
